FAERS Safety Report 12931375 (Version 1)
Quarter: 2016Q4

REPORT INFORMATION
  Report Type: Spontaneous
  Country: CN (occurrence: CN)
  Receive Date: 20161110
  Receipt Date: 20161110
  Transmission Date: 20170207
  Serious: Yes (Hospitalization)
  Sender: FDA-Public Use
  Company Number: CN-PFIZER INC-2016520012

PATIENT
  Age: 81 Year
  Sex: Male
  Weight: 62 kg

DRUGS (3)
  1. CELEBREX [Suspect]
     Active Substance: CELECOXIB
     Indication: PAIN
  2. CELEBREX [Suspect]
     Active Substance: CELECOXIB
     Indication: GOUT
     Dosage: 0.1 G, 2X/DAY
     Route: 048
     Dates: start: 20150215
  3. BENZBROMARONE [Suspect]
     Active Substance: BENZBROMARONE
     Indication: GOUT
     Dosage: 50 MG, 1X/DAY
     Route: 048
     Dates: start: 20150215

REACTIONS (1)
  - Renal impairment [Unknown]

NARRATIVE: CASE EVENT DATE: 20160901
